FAERS Safety Report 4809699-9 (Version None)
Quarter: 2005Q4

REPORT INFORMATION
  Report Type: 
  Country: None (occurrence: None)
  Receive Date: 20051021
  Receipt Date: 20040427
  Transmission Date: 20060501
  Serious: No
  Sender: FDA-Public Use
  Company Number: US_0404102595

PATIENT
  Age: 1 Day
  Sex: Female
  Weight: 3 kg

DRUGS (3)
  1. ZYPREXA [Suspect]
     Dates: start: 20040218
  2. ZOLOFT [Concomitant]
  3. WELLBUTRIN [Concomitant]

REACTIONS (5)
  - DRUG EXPOSURE DURING PREGNANCY [None]
  - DRUG EXPOSURE VIA BREAST MILK [None]
  - LETHARGY [None]
  - NEONATAL DISORDER [None]
  - POLYCYTHAEMIA [None]
